FAERS Safety Report 6764045-9 (Version None)
Quarter: 2010Q2

REPORT INFORMATION
  Report Type: 
  Country: None (occurrence: None)
  Receive Date: 20100608
  Receipt Date: 20100527
  Transmission Date: 20101027
  Serious: Yes (Hospitalization)
  Sender: FDA-Public Use
  Company Number: 2010-1927

PATIENT
  Age: 68 Year
  Sex: Male

DRUGS (3)
  1. APO-GO AMPOULES (APO-GO) (APOMORPHINE HYDROCHLORIDE) (APOMORPHINE HYDR [Suspect]
     Indication: PARKINSON'S DISEASE
     Dosage: 5MG/HR FOR 20 HOURS/DAY (5 MG) ,SUBCUTANEOUS
     Route: 058
     Dates: start: 20100216, end: 20100101
  2. CLOZAPINE [Concomitant]
  3. STALEVO 75 (STALEVO) [Concomitant]

REACTIONS (4)
  - AGITATION [None]
  - CONDITION AGGRAVATED [None]
  - HALLUCINATION [None]
  - PARKINSON'S DISEASE [None]
